FAERS Safety Report 8567372-8 (Version None)
Quarter: 2012Q3

REPORT INFORMATION
  Report Type: 
  Country: None (occurrence: None)
  Receive Date: 20120803
  Receipt Date: 20110914
  Transmission Date: 20120928
  Serious: No
  Sender: FDA-Public Use
  Company Number: US-ABBOTT-11P-163-0854939-00

PATIENT
  Sex: Male
  Weight: 90.8 kg

DRUGS (5)
  1. NIASPAN [Suspect]
     Indication: MYOCARDIAL INFARCTION
  2. ASPIRIN [Concomitant]
     Indication: PRODUCT USED FOR UNKNOWN INDICATION
     Route: 048
  3. ANTARA (MICRONIZED) [Concomitant]
     Indication: PRODUCT USED FOR UNKNOWN INDICATION
     Route: 048
  4. LIPITOR [Concomitant]
     Indication: PRODUCT USED FOR UNKNOWN INDICATION
     Route: 048
  5. NIASPAN [Suspect]
     Indication: CORONARY ARTERY DISEASE
     Dosage: ONE HOUR BEFORE BEDTIME
     Dates: start: 20110906

REACTIONS (4)
  - WOUND HAEMORRHAGE [None]
  - PRURITUS [None]
  - FLUSHING [None]
  - HEADACHE [None]
